FAERS Safety Report 9178183 (Version 2)
Quarter: 2012Q4

REPORT INFORMATION
  Report Type: 
  Country: FI (occurrence: FI)
  Receive Date: 20121023
  Receipt Date: 20121107
  Transmission Date: 20130627
  Serious: Yes (Other)
  Sender: FDA-Public Use
  Company Number: FI-RB-045841-12

PATIENT
  Sex: Female

DRUGS (1)
  1. SUBUTEX [Suspect]
     Indication: DRUG DEPENDENCE
     Dosage: Unknown dosage details
     Route: 065

REACTIONS (4)
  - Premature delivery [Recovered/Resolved]
  - Drug dependence [Recovered/Resolved]
  - Panic reaction [Recovered/Resolved]
  - Exposure during pregnancy [Recovered/Resolved]
